FAERS Safety Report 8558954 (Version 2)
Quarter: 2013Q4

REPORT INFORMATION
  Report Type: Spontaneous
  Country: US (occurrence: US)
  Receive Date: 20120511
  Receipt Date: 20131218
  Transmission Date: 20140711
  Serious: Yes (Other)
  Sender: FDA-Public Use
  Company Number: US-BAYER-2012-046199

PATIENT
  Age: 23 Year
  Sex: Female

DRUGS (4)
  1. YASMIN [Suspect]
  2. YAZ [Suspect]
  3. AMOXICILLIN [Concomitant]
     Dosage: 500 MG, TID
     Route: 048
  4. HYDROCODONE/ACETAMINOPHEN [Concomitant]
     Dosage: 5MG/500MG 1 TO 2 Q 4 H PRN
     Route: 048

REACTIONS (3)
  - Gallbladder injury [None]
  - Injury [None]
  - Cholecystitis [None]
